FAERS Safety Report 18609251 (Version 1)
Quarter: 2020Q4

REPORT INFORMATION
  Report Type: Spontaneous
  Country: US (occurrence: US)
  Receive Date: 20201214
  Receipt Date: 20201214
  Transmission Date: 20210114
  Serious: No
  Sender: FDA-Public Use
  Company Number: US-LUPIN PHARMACEUTICALS INC.-2020-03685

PATIENT
  Age: 28 Year
  Sex: Female

DRUGS (3)
  1. NALTREXONE [Concomitant]
     Active Substance: NALTREXONE
     Indication: SUBSTANCE USE
     Dosage: 50 MILLIGRAM
     Route: 048
  2. OXYCODONE [Suspect]
     Active Substance: OXYCODONE
     Indication: TOOTH EXTRACTION
     Dosage: UNK
     Route: 065
  3. VALPROIC ACID. [Concomitant]
     Active Substance: VALPROIC ACID
     Indication: AFFECTIVE DISORDER
     Dosage: UNK
     Route: 065

REACTIONS (1)
  - Intentional product misuse [Unknown]
